FAERS Safety Report 10388881 (Version 1)
Quarter: 2014Q1

REPORT INFORMATION
  Report Type: Spontaneous
  Country: US (occurrence: None)
  Receive Date: 20140306
  Receipt Date: 20140306
  Transmission Date: 20141002
  Serious: Yes (Disabling)
  Sender: FDA-Public Use
  Company Number: 163-21880-13071574

PATIENT
  Age: 64 Year
  Sex: Male

DRUGS (7)
  1. REVLIMID (LENALIDOMIDE) (10 MILLIGRAM, CAPSULES) [Suspect]
     Indication: BLADDER CANCER
     Route: 048
     Dates: start: 20130328, end: 20130624
  2. CIPRO(CIPROFLOXACIN)(UNKNOWN) [Concomitant]
  3. OFLOXACIN(OFLOXACIN)(UNKNOWN) [Concomitant]
  4. VICODIN(VICODIN)(TABLETS) [Concomitant]
  5. OXYBUTYNIN(OXYBUTYNIN)(UNKNOWN) [Concomitant]
  6. PYRIDIUM(PHENAZOPYRIDINE HYDROCHLORIDE)(UNKNOWN) [Concomitant]
  7. URELLE(URELLE)(TABLETS) [Concomitant]

REACTIONS (1)
  - Cystitis [None]
